FAERS Safety Report 15696064 (Version 1)
Quarter: 2018Q4

REPORT INFORMATION
  Report Type: Spontaneous
  Country: CA (occurrence: CA)
  Receive Date: 20181206
  Receipt Date: 20181206
  Transmission Date: 20190205
  Serious: Yes (Other)
  Sender: FDA-Public Use
  Company Number: CA-IMPAX LABORATORIES, LLC-2018-IPXL-04006

PATIENT
  Age: 45 Year
  Sex: Female

DRUGS (1)
  1. CHLOROQUINE PHOSPHATE. [Suspect]
     Active Substance: CHLOROQUINE PHOSPHATE
     Indication: PALINDROMIC RHEUMATISM
     Dosage: 250 MILLIGRAM, DAILY
     Route: 048

REACTIONS (3)
  - Product use in unapproved indication [Unknown]
  - Renal failure [Unknown]
  - Restrictive cardiomyopathy [Recovered/Resolved]
